FAERS Safety Report 6502579-2 (Version None)
Quarter: 2009Q4

REPORT INFORMATION
  Report Type: 
  Country: None (occurrence: None)
  Receive Date: 20091127
  Receipt Date: 20090917
  Transmission Date: 20100525
  Serious: No
  Sender: FDA-Public Use
  Company Number: 001732

PATIENT
  Sex: Male
  Weight: 83.9 kg

DRUGS (3)
  1. LACOSAMIDE [Suspect]
     Indication: CONVULSION
     Dosage: (200 MG BID ORAL), (400 MG, 400MG QPM ORAL)
     Route: 048
     Dates: start: 20090909, end: 20090916
  2. LACOSAMIDE [Suspect]
     Indication: CONVULSION
     Dosage: (200 MG BID ORAL), (400 MG, 400MG QPM ORAL)
     Route: 048
     Dates: start: 20090916
  3. ZONEGRAN [Concomitant]

REACTIONS (3)
  - EUPHORIC MOOD [None]
  - INSOMNIA [None]
  - SOMNOLENCE [None]
